FAERS Safety Report 6340651-0 (Version None)
Quarter: 2009Q3

REPORT INFORMATION
  Report Type: 
  Country: None (occurrence: None)
  Receive Date: 20090904
  Receipt Date: 20090828
  Transmission Date: 20100115
  Serious: Yes (Other)
  Sender: FDA-Public Use
  Company Number: US-AMGEN-QUU337492

PATIENT
  Sex: Male

DRUGS (3)
  1. ENBREL [Suspect]
     Indication: PSORIASIS
     Route: 058
     Dates: start: 20080122
  2. ZOLOFT [Concomitant]
  3. METHOTREXATE [Concomitant]

REACTIONS (5)
  - ECZEMA INFECTED [None]
  - INTRAOCULAR LENS IMPLANT [None]
  - PSORIASIS [None]
  - STAPHYLOCOCCAL SKIN INFECTION [None]
  - VISION BLURRED [None]
